FAERS Safety Report 8057270-0 (Version None)
Quarter: 2012Q1

REPORT INFORMATION
  Report Type: 
  Country: None (occurrence: None)
  Receive Date: 20120119
  Receipt Date: 20120113
  Transmission Date: 20120608
  Serious: Yes (Other)
  Sender: FDA-Public Use
  Company Number: PHHY2012BR003816

PATIENT
  Sex: Female
  Weight: 60 kg

DRUGS (2)
  1. EXFORGE [Suspect]
     Indication: HYPERTENSION
     Dosage: 1 DF (160/5 MG), DAILY
     Route: 048
     Dates: start: 20100101
  2. DECADRON [Concomitant]
     Indication: NAUSEA
     Dosage: 4 MG, DAILY
     Route: 048
     Dates: start: 20111212

REACTIONS (4)
  - BREAST CANCER [None]
  - FEELING ABNORMAL [None]
  - DIZZINESS [None]
  - VISION BLURRED [None]
